FAERS Safety Report 9663708 (Version 2)
Quarter: 2013Q4

REPORT INFORMATION
  Report Type: Report from Study
  Country: BR (occurrence: BR)
  Receive Date: 20131101
  Receipt Date: 20131125
  Transmission Date: 20140711
  Serious: Yes (Hospitalization, Other)
  Sender: FDA-Public Use
  Company Number: PHHY2013BR120938

PATIENT
  Age: 14 Year
  Sex: Male
  Weight: 72 kg

DRUGS (2)
  1. EXJADE [Suspect]
     Indication: SICKLE CELL ANAEMIA
     Dosage: 4 DF, DAILY
     Route: 048
     Dates: start: 2005
  2. CARBAMAZEPINE [Concomitant]
     Indication: CONVULSION
     Dosage: 2 DF, DAILY
     Route: 048

REACTIONS (7)
  - Groin abscess [Recovered/Resolved]
  - Hair disorder [Recovered/Resolved]
  - Pain in extremity [Not Recovered/Not Resolved]
  - Pain [Not Recovered/Not Resolved]
  - Abdominal pain [Not Recovered/Not Resolved]
  - Cerebrovascular accident [Recovered/Resolved]
  - Mental retardation [Recovered/Resolved]
